FAERS Safety Report 21232420 (Version 1)
Quarter: 2022Q3

REPORT INFORMATION
  Report Type: Spontaneous
  Country: GB (occurrence: GB)
  Receive Date: 20220819
  Receipt Date: 20220819
  Transmission Date: 20221027
  Serious: Yes (Disabling, Other)
  Sender: FDA-Public Use
  Company Number: GB-MHRA-MED-202208111640593740-TNDGK

PATIENT

DRUGS (1)
  1. PREDNISOLONE [Suspect]
     Active Substance: PREDNISOLONE
     Dosage: UNK

REACTIONS (8)
  - Depression suicidal [Unknown]
  - Nightmare [Unknown]
  - Paraesthesia [Unknown]
  - Confusional state [Unknown]
  - Hallucination [Unknown]
  - Vomiting [Recovering/Resolving]
  - Vertigo [Unknown]
  - Nausea [Unknown]

NARRATIVE: CASE EVENT DATE: 20220806
